FAERS Safety Report 5703270-2 (Version None)
Quarter: 2008Q2

REPORT INFORMATION
  Report Type: 
  Country: None (occurrence: None)
  Receive Date: 20080411
  Receipt Date: 20080407
  Transmission Date: 20081010
  Serious: Yes (Death, Other)
  Sender: FDA-Public Use
  Company Number: CA-BAYER-200813667NA

PATIENT
  Sex: Female

DRUGS (2)
  1. TRASYLOL [Suspect]
     Indication: DRUG USE FOR UNKNOWN INDICATION
     Dosage: AS USED: 10000 KIU
  2. TRASYLOL [Suspect]

REACTIONS (6)
  - CARDIAC ARREST [None]
  - CARDIOGENIC SHOCK [None]
  - CARDIOPULMONARY BYPASS [None]
  - HEPATIC FAILURE [None]
  - LACTIC ACIDOSIS [None]
  - POST PROCEDURAL HAEMORRHAGE [None]
